FAERS Safety Report 5009097-1 (Version None)
Quarter: 2006Q2

REPORT INFORMATION
  Report Type: 
  Country: None (occurrence: None)
  Receive Date: 20060519
  Receipt Date: 20060508
  Transmission Date: 20061013
  Serious: Yes (Death, Other)
  Sender: FDA-Public Use
  Company Number: 2006JP001341

PATIENT
  Age: 12 Year
  Sex: Male

DRUGS (3)
  1. PROGRAF [Suspect]
     Indication: LIVER TRANSPLANT
  2. METHYLPRDENISOLONE (METHYLPREDNISOLONE) [Concomitant]
  3. PREDNISOLONE [Concomitant]

REACTIONS (11)
  - ANAEMIA [None]
  - B-CELL LYMPHOMA [None]
  - EPSTEIN-BARR VIRUS INFECTION [None]
  - GASTRIC ULCER [None]
  - HEPATITIS FULMINANT [None]
  - LYMPHOPROLIFERATIVE DISORDER [None]
  - MELAENA [None]
  - METASTASIS [None]
  - SEPSIS [None]
  - SYSTEMIC CANDIDA [None]
  - UPPER RESPIRATORY TRACT INFECTION [None]
